FAERS Safety Report 10209652 (Version 1)
Quarter: 2014Q2

REPORT INFORMATION
  Report Type: Spontaneous
  Country: US (occurrence: US)
  Receive Date: 20140602
  Receipt Date: 20140602
  Transmission Date: 20141212
  Serious: No
  Sender: FDA-Public Use
  Company Number: US-BIOGENIDEC-2014BI046852

PATIENT
  Sex: Female

DRUGS (2)
  1. AVONEX [Suspect]
     Indication: MULTIPLE SCLEROSIS
     Route: 030
     Dates: start: 19990101, end: 20131002
  2. TECFIDERA [Concomitant]
     Indication: MULTIPLE SCLEROSIS
     Route: 048

REACTIONS (6)
  - Musculoskeletal disorder [Recovered/Resolved]
  - Contusion [Unknown]
  - Drug dose omission [Recovered/Resolved]
  - Haemorrhage [Recovered/Resolved]
  - Skin mass [Recovered/Resolved]
  - Pain in extremity [Not Recovered/Not Resolved]
